FAERS Safety Report 5393613-4 (Version None)
Quarter: 2007Q3

REPORT INFORMATION
  Report Type: 
  Country: None (occurrence: None)
  Receive Date: 20070723
  Receipt Date: 20070716
  Transmission Date: 20080115
  Serious: Yes (Hospitalization, Other)
  Sender: FDA-Public Use
  Company Number: AU-NOVOPROD-265571

PATIENT
  Age: 40 Year
  Sex: Male

DRUGS (4)
  1. NOVOSEVEN [Suspect]
     Indication: HAEMORRHAGE
     Dosage: 6 MG, UNK
     Route: 042
     Dates: start: 20070301
  2. PROTAMINE SULFATE [Concomitant]
  3. HEPARIN [Concomitant]
  4. PROTHROMBINEX [Concomitant]

REACTIONS (3)
  - BASAL GANGLIA HAEMORRHAGE [None]
  - DEEP VEIN THROMBOSIS [None]
  - HYPOXIC ENCEPHALOPATHY [None]
